FAERS Safety Report 21481136 (Version 1)
Quarter: 2022Q4

REPORT INFORMATION
  Report Type: Spontaneous
  Country: US (occurrence: None)
  Receive Date: 20221019
  Receipt Date: 20221019
  Transmission Date: 20230112
  Serious: No
  Sender: FDA-Public Use
  Company Number: US-ROCHE-2907396

PATIENT
  Age: 55 Year
  Sex: Male

DRUGS (3)
  1. COTELLIC [Suspect]
     Active Substance: COBIMETINIB
     Indication: Haemophagocytic lymphohistiocytosis
     Dosage: FOR 21 DAYS
     Route: 048
     Dates: start: 20210525
  2. COTELLIC [Suspect]
     Active Substance: COBIMETINIB
     Indication: Histiocytosis
     Route: 048
     Dates: start: 20210611
  3. TESTOSTERONE [Concomitant]
     Active Substance: TESTOSTERONE

REACTIONS (4)
  - Pain [Unknown]
  - Haematospermia [Unknown]
  - Off label use [Unknown]
  - Acne [Unknown]

NARRATIVE: CASE EVENT DATE: 20210812
